FAERS Safety Report 11880291 (Version 2)
Quarter: 2017Q3

REPORT INFORMATION
  Report Type: Spontaneous
  Country: SE (occurrence: SE)
  Receive Date: 20151230
  Receipt Date: 20170721
  Transmission Date: 20171127
  Serious: Yes (Death, Hospitalization)
  Sender: FDA-Public Use
  Company Number: SE-MUNDIPHARMA DS AND PHARMACOVIGILANCE-DEU-2015-0017537

PATIENT
  Age: 89 Year
  Sex: Male

DRUGS (3)
  1. ATARAX [Suspect]
     Active Substance: HYDROXYZINE HYDROCHLORIDE
     Indication: PRURITUS
     Dosage: UNK
     Route: 065
     Dates: start: 201511, end: 201511
  2. BLOOD, WHOLE [Concomitant]
     Active Substance: WHOLE BLOOD
     Dosage: 2 UNIT, SINGLE
     Route: 065
     Dates: start: 201511, end: 201511
  3. DOLCONTIN [Suspect]
     Active Substance: MORPHINE
     Indication: PRODUCT USED FOR UNKNOWN INDICATION
     Dosage: UNK
     Route: 065
     Dates: start: 201511, end: 201511

REACTIONS (6)
  - Confusional state [Recovering/Resolving]
  - Fatigue [Unknown]
  - Wheezing [Unknown]
  - Death [Fatal]
  - Pruritus [Recovering/Resolving]
  - Malaise [Unknown]

NARRATIVE: CASE EVENT DATE: 201511
